FAERS Safety Report 10185638 (Version 1)
Quarter: 2014Q2

REPORT INFORMATION
  Report Type: Spontaneous
  Country: FR (occurrence: FR)
  Receive Date: 20140521
  Receipt Date: 20140521
  Transmission Date: 20141212
  Serious: Yes (Other)
  Sender: FDA-Public Use
  Company Number: FR-ACCORD-023743

PATIENT
  Age: 57 Year
  Sex: Male

DRUGS (2)
  1. GEMCITABINE/GEMCITABINE HYDROCHLORIDE [Suspect]
     Indication: CHOLANGIOCARCINOMA
     Dosage: GEMCITABINE 1000 MG/M? D1 EVERY 2 WEEK
  2. OXALIPLATIN [Concomitant]
     Indication: CHOLANGIOCARCINOMA
     Dosage: OXALIPLATIN 100 MG/M? D2 EVERY 2 WEEK

REACTIONS (2)
  - Off label use [Unknown]
  - Hepatocellular injury [Unknown]
